FAERS Safety Report 6188317-4 (Version None)
Quarter: 2009Q2

REPORT INFORMATION
  Report Type: 
  Country: None (occurrence: None)
  Receive Date: 20090513
  Receipt Date: 20090504
  Transmission Date: 20091009
  Serious: Yes (Hospitalization)
  Sender: FDA-Public Use
  Company Number: KR-PFIZER INC-2009209053

PATIENT
  Age: 63 Year

DRUGS (12)
  1. SUNITINIB MALATE [Suspect]
     Indication: HEPATIC NEOPLASM MALIGNANT
     Dosage: 37.5 MG, 1X/DAY
     Dates: start: 20090313, end: 20090501
  2. MEGESTROL ACETATE [Concomitant]
     Indication: ANOREXIA
     Dosage: 20 ML, DAILY
     Dates: start: 20090407, end: 20090428
  3. URSACOL [Concomitant]
     Indication: LIVER DISORDER
     Dosage: 100 MG, 3X/DAY
     Dates: start: 20090409, end: 20090422
  4. CRAVIT [Concomitant]
     Indication: ANTIBIOTIC THERAPY
     Dosage: 500 MG, DAILY
     Dates: start: 20090402, end: 20090424
  5. ALGIRON [Concomitant]
     Dosage: 50 MG, 3X/DAY
     Dates: start: 20090401, end: 20090501
  6. ARGININE [Concomitant]
     Indication: HEPATIC CIRRHOSIS
     Dosage: 400 MG, 3X/DAY
     Dates: start: 20090401, end: 20090423
  7. DICETEL [Concomitant]
     Indication: DIARRHOEA
     Dosage: 50 MG, 3X/DAY
     Dates: start: 20090326, end: 20090422
  8. DUSPATALIN ^DUPHAR^ [Concomitant]
     Dosage: 135 MG, 3X/DAY
     Dates: start: 20090401, end: 20090423
  9. LASIX [Concomitant]
     Indication: DIURETIC THERAPY
     Dosage: 40 MG, DAILY
     Dates: start: 20090402
  10. LEGALON [Concomitant]
     Indication: HEPATIC CIRRHOSIS
     Dosage: 140 MG, 3X/DAY
     Dates: start: 20090326, end: 20090501
  11. SPIRONOLACTONE [Concomitant]
     Indication: ASCITES
     Dosage: 50 MG, 2X/DAY
     Dates: start: 20090407, end: 20090501
  12. RANITIDINE [Concomitant]
     Indication: GASTRITIS
     Dosage: 75 MG, 3X/DAY
     Dates: start: 20090401, end: 20090501

REACTIONS (3)
  - BLOOD CREATINE INCREASED [None]
  - BLOOD UREA INCREASED [None]
  - HEPATIC ENCEPHALOPATHY [None]
